FAERS Safety Report 11023528 (Version 2)
Quarter: 2015Q2

REPORT INFORMATION
  Report Type: Spontaneous
  Country: US (occurrence: US)
  Receive Date: 20150413
  Receipt Date: 20150619
  Transmission Date: 20150821
  Serious: No
  Sender: FDA-Public Use
  Company Number: US-PFIZER INC-2015121222

PATIENT
  Age: 47 Year
  Sex: Female

DRUGS (15)
  1. SYNTHROID [Concomitant]
     Active Substance: LEVOTHYROXINE SODIUM
     Indication: HYPOPITUITARISM
     Dosage: 100 ?G, 1X/DAY
     Route: 048
     Dates: start: 201406
  2. VALIUM [Concomitant]
     Active Substance: DIAZEPAM
     Indication: HYPOPITUITARISM
     Dosage: 4 MG, 1X/DAY AT BEDTIME
     Route: 048
  3. DDAVP [Concomitant]
     Active Substance: DESMOPRESSIN ACETATE
     Dosage: 0.1 UNK, UNK
  4. VALIUM [Concomitant]
     Active Substance: DIAZEPAM
     Dosage: 4 UNK, UNK (AT BEDTIME)
  5. CYTOMEL [Suspect]
     Active Substance: LIOTHYRONINE SODIUM
     Indication: TRI-IODOTHYRONINE DECREASED
     Dosage: 5 ?G, 2X/DAY
     Route: 048
     Dates: start: 20150325, end: 20150407
  6. CORTEF [Concomitant]
     Active Substance: HYDROCORTISONE
     Indication: HYPOPITUITARISM
     Dosage: 5 MG, 3X/DAY
     Route: 048
  7. CABERGOLINE. [Concomitant]
     Active Substance: CABERGOLINE
     Indication: HYPOPITUITARISM
     Dosage: 0.25 MG, MONTHLY
     Route: 048
  8. CYTOMEL [Suspect]
     Active Substance: LIOTHYRONINE SODIUM
     Indication: HYPOTHYROIDISM
  9. PREMPRO [Concomitant]
     Active Substance: ESTROGENS, CONJUGATED\MEDROXYPROGESTERONE ACETATE
     Indication: HYPOPITUITARISM
     Dosage: 0.65 MG ESTROGEN AND 2.5 MG PROGESTERONE
     Route: 048
  10. VIVELLE [Concomitant]
     Active Substance: ESTRADIOL
     Dosage: 0.05 MG, 1X/DAY (24 HOUR)
  11. OXYTOCIN. [Concomitant]
     Active Substance: OXYTOCIN
     Indication: HYPOPITUITARISM
     Dosage: 12 IU, DAILY
     Dates: start: 2014
  12. DDAVP [Concomitant]
     Active Substance: DESMOPRESSIN ACETATE
     Indication: HYPOPITUITARISM
     Dosage: 0.1 MG, DAILY
     Route: 048
  13. GENOTROPIN [Concomitant]
     Active Substance: SOMATROPIN
     Indication: HYPOPITUITARISM
     Dosage: 0.4 MG, DAILY
     Route: 058
  14. WESTHROID [Concomitant]
     Active Substance: THYROGLOBULIN
     Dosage: 32.5 MG, 3X/DAY
  15. PROMETRIUM [Concomitant]
     Active Substance: PROGESTERONE
     Dosage: 100 MG, UNK

REACTIONS (2)
  - Oedema [Recovered/Resolved]
  - Urine output decreased [Recovered/Resolved]

NARRATIVE: CASE EVENT DATE: 20150407
